FAERS Safety Report 10615926 (Version 2)
Quarter: 2015Q1

REPORT INFORMATION
  Report Type: Spontaneous
  Country: US (occurrence: US)
  Receive Date: 20141201
  Receipt Date: 20150105
  Transmission Date: 20150720
  Serious: Yes (Death, Other)
  Sender: FDA-Public Use
  Company Number: US-ASTELLAS-2014US018277

PATIENT
  Age: 86 Year
  Sex: Male

DRUGS (1)
  1. XTANDI [Suspect]
     Active Substance: ENZALUTAMIDE
     Indication: PROSTATE CANCER
     Route: 065
     Dates: start: 201409, end: 20141118

REACTIONS (3)
  - Traumatic coma [Fatal]
  - Fall [Unknown]
  - Traumatic intracranial haemorrhage [Fatal]

NARRATIVE: CASE EVENT DATE: 20141120
